FAERS Safety Report 10231211 (Version 2)
Quarter: 2015Q2

REPORT INFORMATION
  Report Type: Spontaneous
  Country: US (occurrence: None)
  Receive Date: 20140506
  Receipt Date: 20150504
  Transmission Date: 20150821
  Serious: Yes (Other)
  Sender: FDA-Public Use
  Company Number: 1282985

PATIENT
  Age: 33 Year
  Sex: Male

DRUGS (2)
  1. TEMOZOLOMIDE (TEMOZOLOMIDE) [Concomitant]
     Active Substance: TEMOZOLOMIDE
  2. BEVACIZUMAB (BEVACIZUMAB) [Suspect]
     Active Substance: BEVACIZUMAB
     Indication: CHOROID PLEXUS PAPILLOMA
     Dosage: DISCONTINUED, UNKNOWN?RESTARTED, UNKNOWN

REACTIONS (1)
  - Posterior reversible encephalopathy syndrome [None]
